FAERS Safety Report 5281303-8 (Version None)
Quarter: 2007Q1

REPORT INFORMATION
  Report Type: 
  Country: None (occurrence: None)
  Receive Date: 20061221
  Receipt Date: 20040813
  Transmission Date: 20070707
  Serious: Yes (Other)
  Sender: FDA-Public Use
  Company Number: 2004UW17324

PATIENT
  Sex: Female

DRUGS (1)
  1. SENSORCAINE-MPF [Suspect]
     Indication: ANAESTHESIA
     Dosage: 15 MG DAILY; IT
     Route: 037
     Dates: start: 20040609

REACTIONS (2)
  - MEDICATION ERROR [None]
  - THERAPEUTIC RESPONSE DECREASED [None]
